FAERS Safety Report 9464699 (Version 3)
Quarter: 2013Q3

REPORT INFORMATION
  Report Type: Spontaneous
  Country: US (occurrence: US)
  Receive Date: 20130819
  Receipt Date: 20130905
  Transmission Date: 20140515
  Serious: No
  Sender: FDA-Public Use
  Company Number: US-PFIZER INC-2013237994

PATIENT
  Age: 65 Year
  Sex: Female
  Weight: 68 kg

DRUGS (3)
  1. LYRICA [Suspect]
     Indication: NEUROPATHY PERIPHERAL
     Dosage: 75 MG, 1X/DAY
     Route: 048
  2. PREDNISONE [Concomitant]
     Dosage: 10 MG, UNK
  3. ZITHROMAX [Concomitant]
     Dosage: UNK

REACTIONS (2)
  - Off label use [Unknown]
  - Bronchitis [Unknown]
